FAERS Safety Report 5316679-6 (Version None)
Quarter: 2007Q2

REPORT INFORMATION
  Report Type: 
  Country: None (occurrence: None)
  Receive Date: 20070430
  Receipt Date: 20070430
  Transmission Date: 20071010
  Serious: Yes (Other)
  Sender: FDA-Public Use
  Company Number: None

PATIENT
  Age: 58 Year
  Sex: Female
  Weight: 68.0396 kg

DRUGS (1)
  1. CELEBREX [Suspect]
     Indication: BACK PAIN
     Dosage: 1 PILL 2X DAY PO
     Route: 048
     Dates: start: 20070418, end: 20070419

REACTIONS (6)
  - ASTHENIA [None]
  - ATRIAL FIBRILLATION [None]
  - EYE SWELLING [None]
  - MALAISE [None]
  - SOMNOLENCE [None]
  - WHEEZING [None]
